FAERS Safety Report 21037668 (Version 1)
Quarter: 2022Q3

REPORT INFORMATION
  Report Type: Spontaneous
  Country: CA (occurrence: None)
  Receive Date: 20220704
  Receipt Date: 20220704
  Transmission Date: 20221027
  Serious: Yes (Other)
  Sender: FDA-Public Use
  Company Number: CA-MDD US Operations-MDD202206-001822

PATIENT
  Age: 72 Year
  Sex: Female

DRUGS (12)
  1. SAFINAMIDE [Suspect]
     Active Substance: SAFINAMIDE
     Indication: Parkinson^s disease
  2. SAFINAMIDE [Suspect]
     Active Substance: SAFINAMIDE
  3. CARBIDOPA\LEVODOPA [Concomitant]
     Active Substance: CARBIDOPA\LEVODOPA
     Indication: Parkinson^s disease
     Dosage: NOT PROVIDED
  4. PRAMIPEXOLE [Concomitant]
     Active Substance: PRAMIPEXOLE
     Indication: Parkinson^s disease
     Dosage: NOT PROVIDED
  5. DOMPERIDONE [Concomitant]
     Active Substance: DOMPERIDONE
     Indication: Parkinson^s disease
     Dosage: NOT PROVIDED
  6. RASAGILINE [Concomitant]
     Active Substance: RASAGILINE
     Indication: Parkinson^s disease
     Dosage: NOT PROVIDED
  7. ZOPICLONE [Concomitant]
     Active Substance: ZOPICLONE
     Dosage: NOT PROVIDED
  8. APIXABAN [Concomitant]
     Active Substance: APIXABAN
     Dosage: NOT PROVIDED
  9. CALCIUM [Concomitant]
     Active Substance: CALCIUM
     Dosage: NOT PROVIDED
  10. VITAMIN D [Concomitant]
     Active Substance: VITAMIN D NOS
     Dosage: NOT PROVIDED
  11. DEXLANSOPRAZOLE [Concomitant]
     Active Substance: DEXLANSOPRAZOLE
     Dosage: NOT PROVIDED
  12. Momethasone [Concomitant]
     Dosage: NOT PROVIDED

REACTIONS (1)
  - Pemphigoid [Recovered/Resolved]
